FAERS Safety Report 8602588-3 (Version None)
Quarter: 2012Q3

REPORT INFORMATION
  Report Type: 
  Country: None (occurrence: None)
  Receive Date: 20120817
  Receipt Date: 20120814
  Transmission Date: 20120928
  Serious: Yes (Life-Threatening)
  Sender: FDA-Public Use
  Company Number: PHEH2012US014883

PATIENT
  Sex: Male

DRUGS (2)
  1. TYLENOL [Concomitant]
  2. STALEVO 100 [Suspect]
     Dosage: 150 MG

REACTIONS (14)
  - SPINAL DISORDER [None]
  - ABASIA [None]
  - ARTHRALGIA [None]
  - ASTHENIA [None]
  - MUSCULOSKELETAL STIFFNESS [None]
  - SOMNOLENCE [None]
  - MALAISE [None]
  - FEELING ABNORMAL [None]
  - CARDIAC DISORDER [None]
  - ENURESIS [None]
  - INCORRECT DOSE ADMINISTERED [None]
  - BURNING SENSATION [None]
  - CHEST PAIN [None]
  - DRUG PRESCRIBING ERROR [None]
